FAERS Safety Report 8424650-0 (Version None)
Quarter: 2012Q2

REPORT INFORMATION
  Report Type: 
  Country: None (occurrence: None)
  Receive Date: 20120611
  Receipt Date: 20120606
  Transmission Date: 20120825
  Serious: Yes (Hospitalization)
  Sender: FDA-Public Use
  Company Number: DE-BIOGENIDEC-2012BI016963

PATIENT
  Age: 30 Year
  Sex: Male

DRUGS (2)
  1. TOLPERISON [Concomitant]
     Indication: MUSCLE SPASTICITY
     Route: 048
     Dates: start: 20120321
  2. TYSABRI [Suspect]
     Indication: RELAPSING-REMITTING MULTIPLE SCLEROSIS
     Route: 042
     Dates: start: 20111123

REACTIONS (1)
  - APPENDICITIS PERFORATED [None]
